FAERS Safety Report 23911196 (Version 1)
Quarter: 2024Q2

REPORT INFORMATION
  Report Type: Spontaneous
  Country: GB (occurrence: GB)
  Receive Date: 20240528
  Receipt Date: 20240528
  Transmission Date: 20240715
  Serious: Yes (Other)
  Sender: FDA-Public Use
  Company Number: GB-NXDC-2024GLE00045

PATIENT
  Age: 45 Year
  Sex: Female
  Weight: 63.3 kg

DRUGS (1)
  1. AMINOLEVULINIC ACID HYDROCHLORIDE [Suspect]
     Active Substance: AMINOLEVULINIC ACID HYDROCHLORIDE
     Indication: Glioblastoma multiforme
     Route: 050

REACTIONS (2)
  - Panic attack [Unknown]
  - Seizure [Unknown]

NARRATIVE: CASE EVENT DATE: 20240521
